FAERS Safety Report 9123424 (Version 1)
Quarter: 2013Q1

REPORT INFORMATION
  Report Type: Spontaneous
  Country: US (occurrence: None)
  Receive Date: 20130131
  Receipt Date: 20130131
  Transmission Date: 20140127
  Serious: Yes (Death)
  Sender: FDA-Public Use
  Company Number: IMP_06223_2013

PATIENT
  Age: 67 Year
  Sex: Female

DRUGS (2)
  1. DIGOXIN [Suspect]
     Dosage: (DF)
     Route: 048
  2. METFORMIN [Suspect]
     Dosage: (DF)
     Route: 048

REACTIONS (3)
  - Poisoning [None]
  - Adverse drug reaction [None]
  - Cardioactive drug level above therapeutic [None]
